FAERS Safety Report 21284675 (Version 1)
Quarter: 2022Q3

REPORT INFORMATION
  Report Type: Spontaneous
  Country: JP (occurrence: JP)
  Receive Date: 20220902
  Receipt Date: 20220902
  Transmission Date: 20221026
  Serious: Yes (Other)
  Sender: FDA-Public Use
  Company Number: JP-BAXTER-2022BAX018628

PATIENT
  Age: 83 Year
  Sex: Male

DRUGS (4)
  1. CYCLOPHOSPHAMIDE [Suspect]
     Active Substance: CYCLOPHOSPHAMIDE
     Indication: Eosinophilic granulomatosis with polyangiitis
     Dosage: ON DAY 16 OF HOSPITALIZATION; 500 MG/M2/DAY; (CPA) PULSE THERAPY OF ONE COURSE
     Route: 065
  2. PREDNISOLONE [Suspect]
     Active Substance: PREDNISOLONE
     Indication: Eosinophilic granulomatosis with polyangiitis
     Dosage: FROM DAY 13 OF HOSPITALIZATION; 40 MG/DAY (1.0 MG/KG) AS A POST-TREATMENT.
     Route: 065
  3. PREDNISOLONE [Suspect]
     Active Substance: PREDNISOLONE
     Dosage: DECREASED BY 5 MG/DAY EVERY 4 WEEKS ON AN OUTPATIENT BASIS, WHEN DOSE WAS BELOW 10 MG, IT WAS DECREA
     Route: 065
  4. PREDNISOLONE [Suspect]
     Active Substance: PREDNISOLONE
     Dosage: DECREASED TO 6 MG/DAY
     Route: 065

REACTIONS (1)
  - Diabetes mellitus inadequate control [Unknown]
